FAERS Safety Report 5375001-X (Version None)
Quarter: 2007Q2

REPORT INFORMATION
  Report Type: 
  Country: None (occurrence: None)
  Receive Date: 20070629
  Receipt Date: 20070307
  Transmission Date: 20071010
  Serious: Yes (Other)
  Sender: FDA-Public Use
  Company Number: A0642203A

PATIENT

DRUGS (1)
  1. FLOVENT [Suspect]
     Indication: ASTHMA
     Route: 055
     Dates: start: 20070301, end: 20070301

REACTIONS (3)
  - DIZZINESS [None]
  - DYSPNOEA [None]
  - RASH [None]
